FAERS Safety Report 6388965-2 (Version None)
Quarter: 2009Q4

REPORT INFORMATION
  Report Type: 
  Country: None (occurrence: None)
  Receive Date: 20091001
  Receipt Date: 20090922
  Transmission Date: 20100525
  Serious: Yes (Life-Threatening, Hospitalization)
  Sender: FDA-Public Use
  Company Number: ADR28692009

PATIENT
  Age: 55 Year
  Sex: Male

DRUGS (7)
  1. RAMIPRIL [Suspect]
  2. DIAZEPAM (SUSPECT) [Concomitant]
  3. DICLOFENAC (SUSPECT) [Concomitant]
  4. LANSOPRAZOLE (SUSPECT) [Concomitant]
  5. LEVEMIR (SUSPECT) [Concomitant]
  6. NOVORAPID (SUSPECT) [Concomitant]
  7. ROSUVASTATIN (SUSPECT) [Concomitant]

REACTIONS (19)
  - BLISTER [None]
  - BLOOD CREATININE INCREASED [None]
  - BLOOD UREA INCREASED [None]
  - C-REACTIVE PROTEIN INCREASED [None]
  - CONJUNCTIVITIS [None]
  - GENERAL PHYSICAL HEALTH DETERIORATION [None]
  - HAEMORRHAGIC URTICARIA [None]
  - HERPES ZOSTER [None]
  - LEUKOCYTOSIS [None]
  - NEUROPATHIC ULCER [None]
  - NIKOLSKY'S SIGN [None]
  - ORAL DISORDER [None]
  - RASH ERYTHEMATOUS [None]
  - RASH MACULAR [None]
  - RENAL IMPAIRMENT [None]
  - SCAB [None]
  - SEPSIS [None]
  - SKIN EXFOLIATION [None]
  - TOXIC EPIDERMAL NECROLYSIS [None]
